FAERS Safety Report 14037385 (Version 1)
Quarter: 2017Q4

REPORT INFORMATION
  Report Type: Spontaneous
  Country: ES (occurrence: ES)
  Receive Date: 20171004
  Receipt Date: 20171004
  Transmission Date: 20180321
  Serious: Yes (Other)
  Sender: FDA-Public Use
  Company Number: ES-AMGEN-ESPSP2015142389

PATIENT
  Age: 79 Year
  Sex: Female

DRUGS (8)
  1. OMEPRAZOLE. [Concomitant]
     Active Substance: OMEPRAZOLE
     Dosage: 20 MG, QD
  2. TIOTROPIUM [Concomitant]
     Active Substance: TIOTROPIUM
     Dosage: 18 MUG, QD
  3. VECTIBIX [Suspect]
     Active Substance: PANITUMUMAB
     Indication: COLORECTAL CANCER METASTATIC
     Dosage: UNK UNK, CYCLICAL
     Route: 065
  4. OXALIPLATIN. [Suspect]
     Active Substance: OXALIPLATIN
     Indication: COLORECTAL CANCER METASTATIC
     Dosage: UNK UNK, CYCLICAL
     Route: 065
  5. FOLINIC ACID [Concomitant]
     Active Substance: LEUCOVORIN
     Indication: COLORECTAL CANCER METASTATIC
     Dosage: UNK UNK, CYCLICAL
  6. NIFEDIPINE. [Concomitant]
     Active Substance: NIFEDIPINE
     Dosage: 30 MG, QD
  7. 5-FLUOROURACIL [Concomitant]
     Active Substance: FLUOROURACIL
     Indication: COLORECTAL CANCER METASTATIC
     Dosage: UNK UNK, CYCLICAL
  8. ENOXAPARIN [Concomitant]
     Active Substance: ENOXAPARIN
     Dosage: 80 MG, QD

REACTIONS (6)
  - Metastases to liver [Not Recovered/Not Resolved]
  - Asthenia [Unknown]
  - Dermatitis acneiform [Unknown]
  - Diarrhoea [Unknown]
  - Malignant neoplasm progression [Not Recovered/Not Resolved]
  - Neuropathy peripheral [Unknown]
